FAERS Safety Report 18431201 (Version 1)
Quarter: 2020Q4

REPORT INFORMATION
  Report Type: Spontaneous
  Country: AU (occurrence: AU)
  Receive Date: 20201027
  Receipt Date: 20201027
  Transmission Date: 20210114
  Serious: Yes (Hospitalization)
  Sender: FDA-Public Use
  Company Number: None

PATIENT
  Sex: Female

DRUGS (6)
  1. IMATINIB MES 400MG [Suspect]
     Active Substance: IMATINIB MESYLATE
     Indication: MALIGNANT CONNECTIVE TISSUE NEOPLASM
     Route: 048
     Dates: start: 20180109
  2. ZYRTEC ALLGY [Concomitant]
  3. ONDANSETRON [Concomitant]
     Active Substance: ONDANSETRON
  4. CARISOPRODOL. [Concomitant]
     Active Substance: CARISOPRODOL
  5. FIBERCON [Concomitant]
     Active Substance: CALCIUM POLYCARBOPHIL
  6. VIT D [Concomitant]
     Active Substance: VITAMIN D NOS

REACTIONS (2)
  - Therapy interrupted [None]
  - Hospitalisation [None]
